FAERS Safety Report 6817871-1 (Version None)
Quarter: 2010Q3

REPORT INFORMATION
  Report Type: 
  Country: None (occurrence: None)
  Receive Date: 20100706
  Receipt Date: 20100629
  Transmission Date: 20110219
  Serious: Yes (Hospitalization)
  Sender: FDA-Public Use
  Company Number: JP-BRISTOL-MYERS SQUIBB COMPANY-14902860

PATIENT
  Age: 71 Year
  Sex: Female
  Weight: 55 kg

DRUGS (7)
  1. BARACLUDE [Suspect]
     Indication: HEPATITIS B
     Route: 048
     Dates: start: 20090611, end: 20090917
  2. BARACLUDE [Suspect]
     Indication: RASH
     Route: 048
     Dates: start: 20090611, end: 20090917
  3. ONEALFA [Suspect]
     Indication: RASH
     Route: 048
     Dates: start: 20080402, end: 20091216
  4. ZEFIX [Suspect]
     Indication: RASH
     Dosage: TABS
     Route: 048
     Dates: start: 20090917, end: 20091008
  5. CALCIUM ASPARTATE [Concomitant]
     Dosage: TABLET
     Route: 048
  6. POTASSIUM ASPARTATE [Concomitant]
     Indication: RASH
     Route: 048
     Dates: start: 20080402, end: 20091216
  7. URSO 250 [Concomitant]
     Indication: LIVER DISORDER
     Route: 048
     Dates: start: 20091008

REACTIONS (2)
  - ERYTHEMA MULTIFORME [None]
  - PEMPHIGOID [None]
